FAERS Safety Report 7936712-2 (Version None)
Quarter: 2011Q4

REPORT INFORMATION
  Report Type: 
  Country: None (occurrence: None)
  Receive Date: 20111123
  Receipt Date: 20111116
  Transmission Date: 20120403
  Serious: Yes (Hospitalization, Other)
  Sender: FDA-Public Use
  Company Number: JP-GENZYME-THYM-1002085

PATIENT
  Sex: Female
  Weight: 55 kg

DRUGS (56)
  1. CYCLOPHOSPHAMIDE [Concomitant]
     Indication: APLASTIC ANAEMIA
     Dosage: UNK
     Dates: start: 20100712, end: 20100715
  2. FREEZE DRIED SULFONATED HUMAN [Concomitant]
     Dosage: UNK
     Dates: start: 20100729, end: 20100729
  3. FREEZE DRIED SULFONATED HUMAN [Concomitant]
     Dosage: UNK
     Dates: start: 20100826, end: 20100826
  4. METHOTREXATE [Concomitant]
     Dosage: UNK
     Dates: start: 20100724, end: 20100724
  5. FILGRASTIM [Concomitant]
     Indication: PRODUCT USED FOR UNKNOWN INDICATION
     Dosage: UNK
     Dates: start: 20100726, end: 20100812
  6. FILGRASTIM [Concomitant]
     Dosage: UNK
     Dates: start: 20100820, end: 20100820
  7. CYCLOSPORINE [Concomitant]
     Dosage: UNK
     Dates: start: 20101202, end: 20101202
  8. FREEZE DRIED SULFONATED HUMAN [Concomitant]
     Dosage: UNK
     Dates: start: 20100819, end: 20100821
  9. FREEZE DRIED SULFONATED HUMAN [Concomitant]
     Dosage: UNK
     Dates: start: 20100901, end: 20100902
  10. FREEZE DRIED SULFONATED HUMAN [Concomitant]
     Dosage: UNK
     Dates: start: 20101215, end: 20101215
  11. CEFPIROME SULFATE [Concomitant]
     Dosage: UNK
     Dates: start: 20101016, end: 20101024
  12. FAMOTIDINE [Concomitant]
     Dosage: UNK
     Dates: start: 20100902, end: 20100902
  13. FILGRASTIM [Concomitant]
     Dosage: UNK
     Dates: start: 20100827, end: 20100827
  14. FILGRASTIM [Concomitant]
     Dosage: UNK
     Dates: start: 20100901, end: 20100902
  15. CEFEPIME HYDROCHLORIDE [Concomitant]
     Dosage: UNK
     Dates: start: 20101028, end: 20101101
  16. FLUDARA [Suspect]
     Indication: APLASTIC ANAEMIA
     Dosage: UNK
     Route: 065
     Dates: start: 20100712, end: 20100715
  17. FREEZE DRIED SULFONATED HUMAN [Concomitant]
     Dosage: UNK
     Dates: start: 20100908, end: 20100909
  18. FREEZE DRIED SULFONATED HUMAN [Concomitant]
     Dosage: UNK
     Dates: start: 20100912, end: 20100914
  19. FREEZE DRIED SULFONATED HUMAN [Concomitant]
     Dosage: UNK
     Dates: start: 20101016, end: 20101017
  20. MINOCYCLINE HYDROCHLORIDE [Concomitant]
     Indication: INFECTION PROPHYLAXIS
     Dosage: UNK
     Dates: start: 20100727, end: 20100806
  21. CEFEPIME HYDROCHLORIDE [Concomitant]
     Indication: INFECTION PROPHYLAXIS
     Dosage: UNK
     Dates: start: 20100806, end: 20100901
  22. CEFPIROME SULFATE [Concomitant]
     Dosage: UNK
     Dates: start: 20100905, end: 20100917
  23. RED BLOOD CELLS, CONCENTRATED [Concomitant]
     Indication: APLASTIC ANAEMIA
     Dosage: UNK
     Dates: start: 20100917, end: 20101027
  24. FREEZE DRIED SULFONATED HUMAN [Concomitant]
     Dosage: UNK
     Dates: start: 20100722, end: 20100722
  25. FREEZE DRIED SULFONATED HUMAN [Concomitant]
     Dosage: UNK
     Dates: start: 20100805, end: 20100805
  26. FREEZE DRIED SULFONATED HUMAN [Concomitant]
     Dosage: UNK
     Dates: start: 20101113, end: 20101113
  27. MEROPENEM [Concomitant]
     Indication: INFECTION PROPHYLAXIS
     Dosage: UNK
     Dates: start: 20100727, end: 20100806
  28. CYCLOSPORINE [Concomitant]
     Dosage: UNK
     Dates: start: 20101026, end: 20101124
  29. FREEZE DRIED SULFONATED HUMAN [Concomitant]
     Indication: INFECTION PROPHYLAXIS
     Dosage: UNK
     Dates: start: 20100712, end: 20100714
  30. CEFPIROME SULFATE [Concomitant]
     Indication: INFECTION PROPHYLAXIS
     Dosage: UNK
     Dates: start: 20100712, end: 20100727
  31. CEFPIROME SULFATE [Concomitant]
     Dosage: UNK
     Dates: start: 20101114, end: 20101117
  32. CEFPIROME SULFATE [Concomitant]
     Dosage: UNK
     Dates: start: 20101120, end: 20101123
  33. FOSFLUCONAZOLE [Concomitant]
     Indication: INFECTION PROPHYLAXIS
     Dosage: UNK
     Dates: start: 20100712, end: 20100919
  34. FAMOTIDINE [Concomitant]
     Indication: PROPHYLAXIS AGAINST GASTROINTESTINAL ULCER
     Dosage: UNK
     Dates: start: 20100716, end: 20100725
  35. FAMOTIDINE [Concomitant]
     Dosage: UNK
     Dates: start: 20100812, end: 20100819
  36. FAMOTIDINE [Concomitant]
     Dosage: UNK
     Dates: start: 20100908, end: 20100908
  37. FILGRASTIM [Concomitant]
     Dosage: UNK
     Dates: start: 20101026, end: 20101026
  38. MEROPENEM [Concomitant]
     Dosage: UNK
     Dates: start: 20100901, end: 20100904
  39. PLATELETS, CONCENTRATED [Concomitant]
     Indication: CYTOMEGALOVIRUS TEST POSITIVE
     Dosage: UNK
     Dates: start: 20100722, end: 20101026
  40. CYCLOSPORINE [Concomitant]
     Dosage: UNK
     Dates: start: 20100720, end: 20101215
  41. FREEZE DRIED SULFONATED HUMAN [Concomitant]
     Dosage: UNK
     Dates: start: 20100812, end: 20100812
  42. FREEZE DRIED SULFONATED HUMAN [Concomitant]
     Dosage: UNK
     Dates: start: 20101106, end: 20101106
  43. CEFPIROME SULFATE [Concomitant]
     Dosage: UNK
     Dates: start: 20101210, end: 20101215
  44. FAMOTIDINE [Concomitant]
     Dosage: UNK
     Dates: start: 20100928, end: 20101018
  45. METHOTREXATE [Concomitant]
     Dosage: UNK
     Dates: start: 20100727, end: 20100727
  46. METHOTREXATE [Concomitant]
     Dosage: UNK
     Dates: start: 20100801, end: 20100801
  47. TEICOPLANIN [Concomitant]
     Indication: INFECTION PROPHYLAXIS
     Dosage: UNK
     Dates: start: 20100806, end: 20100811
  48. THYMOGLOBULIN [Suspect]
     Indication: BONE MARROW CONDITIONING REGIMEN
     Dosage: 69 MG, QD
     Route: 042
     Dates: start: 20100716, end: 20100719
  49. CYCLOSPORINE [Concomitant]
     Indication: PROPHYLAXIS AGAINST GRAFT VERSUS HOST DISEASE
     Dosage: UNK
     Dates: start: 20100922, end: 20101027
  50. CYCLOSPORINE [Concomitant]
     Dosage: UNK
     Dates: start: 20101124, end: 20101214
  51. FREEZE DRIED SULFONATED HUMAN [Concomitant]
     Dosage: UNK
     Dates: start: 20100807, end: 20100808
  52. FREEZE DRIED SULFONATED HUMAN [Concomitant]
     Dosage: UNK
     Dates: start: 20101023, end: 20101024
  53. FREEZE DRIED SULFONATED HUMAN [Concomitant]
     Dosage: UNK
     Dates: start: 20101030, end: 20101031
  54. FAMOTIDINE [Concomitant]
     Dosage: UNK
     Dates: start: 20100825, end: 20100825
  55. FAMOTIDINE [Concomitant]
     Dosage: UNK
     Dates: start: 20100926, end: 20100926
  56. METHOTREXATE [Concomitant]
     Indication: PRODUCT USED FOR UNKNOWN INDICATION
     Dosage: UNK
     Dates: start: 20100722, end: 20100722

REACTIONS (3)
  - CYSTITIS HAEMORRHAGIC [None]
  - GRAFT VERSUS HOST DISEASE IN SKIN [None]
  - CYTOMEGALOVIRUS TEST POSITIVE [None]
